FAERS Safety Report 5296809-5 (Version None)
Quarter: 2007Q1

REPORT INFORMATION
  Report Type: 
  Country: None (occurrence: None)
  Receive Date: 20070201
  Receipt Date: 20061107
  Transmission Date: 20070707
  Serious: No
  Sender: FDA-Public Use
  Company Number: 2006PV024781

PATIENT
  Age: 81 Year
  Sex: Male
  Weight: 133.8111 kg

DRUGS (3)
  1. BYETTA [Suspect]
     Indication: DIABETES MELLITUS NON-INSULIN-DEPENDENT
     Dosage: SEE IMAGE
     Route: 058
     Dates: start: 20060521, end: 20060621
  2. BYETTA [Suspect]
     Indication: DIABETES MELLITUS NON-INSULIN-DEPENDENT
     Dosage: SEE IMAGE
     Route: 058
     Dates: start: 20060622
  3. GLIPIZIDE ER [Concomitant]

REACTIONS (5)
  - BLOOD GLUCOSE DECREASED [None]
  - EARLY SATIETY [None]
  - FEELING ABNORMAL [None]
  - MEDICATION ERROR [None]
  - WEIGHT FLUCTUATION [None]
